FAERS Safety Report 7286858-X (Version None)
Quarter: 2011Q1

REPORT INFORMATION
  Report Type: 
  Country: None (occurrence: None)
  Receive Date: 20110211
  Receipt Date: 20110131
  Transmission Date: 20110831
  Serious: Yes (Death)
  Sender: FDA-Public Use
  Company Number: JP-ROCHE-756162

PATIENT
  Age: 64 Year
  Sex: Male

DRUGS (2)
  1. CELLCEPT [Suspect]
     Indication: GRAFT VERSUS HOST DISEASE
     Route: 048
  2. TACROLIMUS [Concomitant]
     Route: 065

REACTIONS (3)
  - RESPIRATORY FAILURE [None]
  - IDIOPATHIC PNEUMONIA SYNDROME [None]
  - PNEUMOMEDIASTINUM [None]
